FAERS Safety Report 8284411-2 (Version None)
Quarter: 2012Q2

REPORT INFORMATION
  Report Type: 
  Country: None (occurrence: None)
  Receive Date: 20120413
  Receipt Date: 20111213
  Transmission Date: 20120825
  Serious: No
  Sender: FDA-Public Use
  Company Number: US-ASTRAZENECA-2011SE62965

PATIENT
  Age: 77 Year
  Sex: Female
  Weight: 93.9 kg

DRUGS (4)
  1. NEXIUM [Suspect]
     Route: 048
  2. OMEPRAZOLE [Suspect]
     Route: 048
  3. PREVACID [Concomitant]
  4. PRILOSEC OTC [Suspect]
     Dosage: TWO PER DAY
     Route: 048

REACTIONS (22)
  - ABDOMINAL PAIN UPPER [None]
  - BREAST ABSCESS [None]
  - OESOPHAGEAL PAIN [None]
  - DYSPEPSIA [None]
  - URINARY INCONTINENCE [None]
  - ARTHRALGIA [None]
  - NAUSEA [None]
  - DRUG DOSE OMISSION [None]
  - PAIN IN EXTREMITY [None]
  - NECK PAIN [None]
  - MALAISE [None]
  - DRUG INEFFECTIVE [None]
  - CHEST DISCOMFORT [None]
  - CHEST PAIN [None]
  - OSTEOARTHRITIS [None]
  - GASTRIC DISORDER [None]
  - ONYCHOMYCOSIS [None]
  - GASTROOESOPHAGEAL REFLUX DISEASE [None]
  - BREAST CYST [None]
  - MYALGIA [None]
  - PYREXIA [None]
  - OROPHARYNGEAL PAIN [None]
